FAERS Safety Report 7443221-6 (Version None)
Quarter: 2011Q2

REPORT INFORMATION
  Report Type: 
  Country: None (occurrence: None)
  Receive Date: 20110428
  Receipt Date: 20110422
  Transmission Date: 20111010
  Serious: Yes (Hospitalization)
  Sender: FDA-Public Use
  Company Number: B0713950A

PATIENT
  Sex: Female
  Weight: 45 kg

DRUGS (9)
  1. RENIVACE [Concomitant]
     Indication: CARDIAC FAILURE CHRONIC
     Route: 048
  2. DIART [Concomitant]
     Indication: CARDIAC FAILURE CHRONIC
     Route: 048
  3. ALDACTONE [Concomitant]
     Indication: CARDIAC FAILURE CHRONIC
     Route: 048
  4. TYKERB [Suspect]
     Indication: BREAST CANCER
     Dosage: 1250MG PER DAY
     Route: 048
     Dates: start: 20100312, end: 20100325
  5. PYDOXAL [Concomitant]
     Indication: NEUROPATHY PERIPHERAL
     Route: 048
  6. ARTIST [Concomitant]
     Indication: CARDIAC FAILURE CHRONIC
     Route: 048
  7. MUCOSTA [Concomitant]
     Indication: PROPHYLAXIS
     Route: 048
  8. FERROUS CITRATE [Concomitant]
     Route: 048
  9. XELODA [Concomitant]
     Dosage: 1800MG PER DAY
     Route: 048
     Dates: start: 20100312, end: 20100325

REACTIONS (2)
  - ELECTROCARDIOGRAM QT PROLONGED [None]
  - DEHYDRATION [None]
